FAERS Safety Report 19249400 (Version 1)
Quarter: 2021Q2

REPORT INFORMATION
  Report Type: Report from Study
  Country: None (occurrence: US)
  Receive Date: 20210513
  Receipt Date: 20210513
  Transmission Date: 20210717
  Serious: Yes (Disabling)
  Sender: FDA-Public Use
  Company Number: US-ABBVIE-21K-163-3891911-00

PATIENT
  Age: 33 Year
  Sex: Female

DRUGS (1)
  1. HUMIRA [Suspect]
     Active Substance: ADALIMUMAB
     Indication: PSORIASIS
     Route: 058
     Dates: start: 2018

REACTIONS (4)
  - Injection site reaction [Unknown]
  - Wrong technique in product usage process [Recovered/Resolved]
  - Device difficult to use [Recovered/Resolved]
  - Disability [Unknown]

NARRATIVE: CASE EVENT DATE: 202103
